FAERS Safety Report 25226791 (Version 1)
Quarter: 2025Q2

REPORT INFORMATION
  Report Type: Spontaneous
  Country: US (occurrence: None)
  Receive Date: 20250422
  Receipt Date: 20250422
  Transmission Date: 20250717
  Serious: Yes (Other)
  Sender: FDA-CTU
  Company Number: None

PATIENT
  Age: 53 Year
  Sex: Male
  Weight: 136.4 kg

DRUGS (12)
  1. HUMIRA [Suspect]
     Active Substance: ADALIMUMAB
     Indication: Crohn^s disease
     Dosage: OTHER FREQUENCY : Q 2WKS;?
     Route: 058
     Dates: start: 20220618
  2. METOPROLOL [Concomitant]
     Active Substance: METOPROLOL
  3. VITAMINS [Concomitant]
     Active Substance: VITAMINS
  4. BIOTIN [Concomitant]
     Active Substance: BIOTIN
  5. XANAX [Concomitant]
     Active Substance: ALPRAZOLAM
  6. LORATADINE [Concomitant]
     Active Substance: LORATADINE
  7. FLONASE [Concomitant]
     Active Substance: FLUTICASONE PROPIONATE
  8. albuterol inhailer [Concomitant]
  9. METFORMIN [Concomitant]
     Active Substance: METFORMIN HYDROCHLORIDE
  10. DICLOFENAC [Concomitant]
     Active Substance: DICLOFENAC
  11. FLEXERIL [Concomitant]
     Active Substance: CYCLOBENZAPRINE HYDROCHLORIDE
  12. ELIQUIS [Concomitant]
     Active Substance: APIXABAN

REACTIONS (1)
  - Malignant melanoma [None]

NARRATIVE: CASE EVENT DATE: 20250407
